FAERS Safety Report 13957025 (Version 1)
Quarter: 2017Q3

REPORT INFORMATION
  Report Type: Spontaneous
  Country: CZ (occurrence: CZ)
  Receive Date: 20170911
  Receipt Date: 20170911
  Transmission Date: 20171128
  Serious: Yes (Hospitalization)
  Sender: FDA-Public Use
  Company Number: CZ-FRESENIUS KABI-FK201706879

PATIENT
  Age: 47 Year
  Sex: Female

DRUGS (1)
  1. PROPOFOL LCT/MCT 10 MG/ML FRESENIUS [Suspect]
     Active Substance: PROPOFOL
     Indication: ANAESTHESIA
     Route: 042
     Dates: start: 20170721, end: 20170721

REACTIONS (5)
  - Vomiting [Recovered/Resolved]
  - Multiple use of single-use product [Unknown]
  - Inadequate aseptic technique in use of product [Unknown]
  - Wrong technique in product usage process [Unknown]
  - Pyrexia [Recovered/Resolved]

NARRATIVE: CASE EVENT DATE: 20170721
